FAERS Safety Report 8239238 (Version 2)
Quarter: 2020Q3

REPORT INFORMATION
  Report Type: Report from Study
  Country: IT (occurrence: IT)
  Receive Date: 20111110
  Receipt Date: 20120105
  Transmission Date: 20201104
  Serious: Yes (Hospitalization)
  Sender: FDA-Public Use
  Company Number: IT-JNJFOC-20110707696

PATIENT
  Age: 79 Year
  Sex: Female
  Weight: 80 kg

DRUGS (9)
  1. XARELTO [Suspect]
     Active Substance: RIVAROXABAN
     Indication: THROMBOSIS PROPHYLAXIS
     Route: 065
  2. XARELTO [Suspect]
     Active Substance: RIVAROXABAN
     Route: 065
     Dates: start: 20100225, end: 20100302
  3. VYTORIN [Concomitant]
     Active Substance: EZETIMIBE\SIMVASTATIN
     Indication: HYPERCHOLESTEROLAEMIA
     Dates: start: 1990
  4. XARELTO [Suspect]
     Active Substance: RIVAROXABAN
     Route: 065
     Dates: start: 20100225, end: 20100302
  5. PERFALGAN [Concomitant]
     Active Substance: ACETAMINOPHEN
     Dates: start: 20100225
  6. CLEXANE [Concomitant]
     Active Substance: ENOXAPARIN SODIUM
     Dates: start: 20100302
  7. OMEPRAZOLE. [Concomitant]
     Active Substance: OMEPRAZOLE
     Indication: PROPHYLAXIS AGAINST GASTROINTESTINAL ULCER
     Route: 048
     Dates: start: 20100208
  8. XARELTO [Suspect]
     Active Substance: RIVAROXABAN
     Indication: KNEE ARTHROPLASTY
     Route: 065
  9. OXYMETAZOLINE HYDROCHLORIDE. [Concomitant]
     Active Substance: OXYMETAZOLINE HYDROCHLORIDE
     Dates: start: 20100225, end: 20100228

REACTIONS (1)
  - Venous thrombosis [Recovered/Resolved]

NARRATIVE: CASE EVENT DATE: 20100302
